FAERS Safety Report 21783447 (Version 2)
Quarter: 2022Q4

REPORT INFORMATION
  Report Type: Spontaneous
  Country: RU (occurrence: RU)
  Receive Date: 20221227
  Receipt Date: 20221229
  Transmission Date: 20230113
  Serious: Yes (Death, Life-Threatening, Hospitalization, Other)
  Sender: FDA-Public Use
  Company Number: RU-BAXTER-2022BAX031527

PATIENT
  Age: 48 Year
  Sex: Female
  Weight: 51 kg

DRUGS (12)
  1. DOXORUBICIN [Suspect]
     Active Substance: DOXORUBICIN
     Indication: HER2 positive breast cancer
     Dosage: NEOADJUVANT THERAPY (AC THERAPY)
     Route: 065
  2. CYCLOPHOSPHAMIDE [Suspect]
     Active Substance: CYCLOPHOSPHAMIDE
     Indication: HER2 positive breast cancer
     Dosage: NEOADJUVANT THERAPY (AC THERAPY)
     Route: 065
  3. TRASTUZUMAB [Suspect]
     Active Substance: TRASTUZUMAB
     Indication: HER2 positive breast cancer
     Dosage: NEOADJUVANT THERAPY
     Route: 065
  4. TRASTUZUMAB [Suspect]
     Active Substance: TRASTUZUMAB
     Indication: Neoplasm progression
     Dosage: UNK
     Route: 065
     Dates: start: 20221209, end: 20221209
  5. PERTUZUMAB [Suspect]
     Active Substance: PERTUZUMAB
     Indication: HER2 positive breast cancer
     Dosage: NEOADJUVANT THERAPY
     Route: 065
  6. DOCETAXEL [Suspect]
     Active Substance: DOCETAXEL
     Indication: HER2 positive breast cancer
     Dosage: NEOADJUVANT THERAPY
     Route: 065
  7. LAPATINIB [Suspect]
     Active Substance: LAPATINIB
     Indication: HER2 positive breast cancer
     Dosage: (2 COURSES)
     Route: 065
  8. LAPATINIB [Suspect]
     Active Substance: LAPATINIB
     Indication: Neoplasm progression
     Dosage: THE 2 ND COURSE
     Route: 065
     Dates: start: 20221118
  9. CAPECITABINE [Suspect]
     Active Substance: CAPECITABINE
     Indication: HER2 positive breast cancer
     Dosage: (2 COURSES)
     Route: 065
  10. CAPECITABINE [Suspect]
     Active Substance: CAPECITABINE
     Indication: Neoplasm progression
     Dosage: THE 2 ND COURSE
     Route: 065
     Dates: start: 20221118
  11. IXEMPRA [Suspect]
     Active Substance: IXABEPILONE
     Indication: HER2 positive breast cancer
     Dosage: 40 MG/M2
     Route: 041
     Dates: start: 20221209, end: 20221209
  12. IXEMPRA [Suspect]
     Active Substance: IXABEPILONE
     Indication: Neoplasm progression

REACTIONS (8)
  - Death [Fatal]
  - Peripheral swelling [Not Recovered/Not Resolved]
  - Rash vesicular [Not Recovered/Not Resolved]
  - Diarrhoea [Not Recovered/Not Resolved]
  - Asthenia [Not Recovered/Not Resolved]
  - Sepsis [Not Recovered/Not Resolved]
  - Neutropenia [Unknown]
  - Disease progression [Not Recovered/Not Resolved]

NARRATIVE: CASE EVENT DATE: 20221215
